FAERS Safety Report 5413208-3 (Version None)
Quarter: 2007Q3

REPORT INFORMATION
  Report Type: 
  Country: None (occurrence: None)
  Receive Date: 20070814
  Receipt Date: 20070807
  Transmission Date: 20080115
  Serious: Yes (Hospitalization, Disabling)
  Sender: FDA-Public Use
  Company Number: PHBS2007JP11483

PATIENT
  Age: 77 Year
  Sex: Male

DRUGS (2)
  1. LAMISIL [Suspect]
     Indication: NAIL TINEA
     Dosage: UNK, UNK
     Route: 048
     Dates: start: 20070401
  2. LASIX [Concomitant]

REACTIONS (1)
  - SUDDEN HEARING LOSS [None]
